FAERS Safety Report 19737967 (Version 1)
Quarter: 2021Q3

REPORT INFORMATION
  Report Type: Spontaneous
  Country: GR (occurrence: GR)
  Receive Date: 20210823
  Receipt Date: 20210823
  Transmission Date: 20211014
  Serious: Yes (Hospitalization, Other)
  Sender: FDA-Public Use
  Company Number: GR-MYLANLABS-2021M1054905

PATIENT
  Age: 43 Year
  Sex: Male

DRUGS (3)
  1. DEXAMETHASONE. [Suspect]
     Active Substance: DEXAMETHASONE
     Indication: HAEMOPHAGOCYTIC LYMPHOHISTIOCYTOSIS
     Dosage: 10 MILLIGRAM/SQ. METER, QD
  2. METHYLPREDNISOLONE. [Suspect]
     Active Substance: METHYLPREDNISOLONE
     Indication: IGA NEPHROPATHY
     Dosage: 8 MILLIGRAM, QD
  3. MYCOPHENOLIC ACID. [Suspect]
     Active Substance: MYCOPHENOLIC ACID
     Indication: IGA NEPHROPATHY
     Dosage: UNK

REACTIONS (7)
  - Leishmaniasis [Recovered/Resolved]
  - B-lymphocyte count decreased [Recovering/Resolving]
  - Blood immunoglobulin G decreased [Recovered/Resolved]
  - Secondary immunodeficiency [Recovered/Resolved]
  - Off label use [Unknown]
  - Blood immunoglobulin M decreased [Recovered/Resolved]
  - Haemophagocytic lymphohistiocytosis [Recovered/Resolved]
